FAERS Safety Report 11862052 (Version 2)
Quarter: 2016Q1

REPORT INFORMATION
  Report Type: Report from Study
  Country: US (occurrence: US)
  Receive Date: 20151222
  Receipt Date: 20160111
  Transmission Date: 20160526
  Serious: Yes (Hospitalization)
  Sender: FDA-Public Use
  Company Number: US-GILEAD-2015-0181913

PATIENT
  Age: 53 Year
  Sex: Female

DRUGS (1)
  1. LEDIPASVIR/SOFOSBUVIR [Suspect]
     Active Substance: LEDIPASVIR\SOFOSBUVIR
     Indication: CHRONIC HEPATITIS C
     Dosage: 1 DF, UNK
     Route: 048
     Dates: start: 20151030

REACTIONS (18)
  - Flushing [Unknown]
  - Limb discomfort [Unknown]
  - Memory impairment [Unknown]
  - Diarrhoea [Unknown]
  - Photopsia [Unknown]
  - Mental disorder [Unknown]
  - Decreased appetite [Unknown]
  - Fatigue [Unknown]
  - Tongue ulceration [Unknown]
  - Skin mass [Unknown]
  - Pain in extremity [Unknown]
  - Musculoskeletal discomfort [Unknown]
  - Tremor [Not Recovered/Not Resolved]
  - Parosmia [Unknown]
  - Nasal ulcer [Unknown]
  - Pain [Unknown]
  - Sinus disorder [Unknown]
  - Peripheral swelling [Unknown]
